FAERS Safety Report 20992081 (Version 1)
Quarter: 2022Q2

REPORT INFORMATION
  Report Type: Spontaneous
  Country: US (occurrence: US)
  Receive Date: 20220622
  Receipt Date: 20220622
  Transmission Date: 20220721
  Serious: No
  Sender: FDA-Public Use
  Company Number: US-PFIZER INC-PV202200005164

PATIENT
  Age: 77 Year
  Sex: Female
  Weight: 64.41 kg

DRUGS (2)
  1. XELJANZ XR [Suspect]
     Active Substance: TOFACITINIB CITRATE
     Indication: Rheumatoid arthritis
     Dosage: 11 MG
     Route: 048
  2. HUMIRA [Suspect]
     Active Substance: ADALIMUMAB
     Indication: Rheumatoid arthritis
     Dosage: UNK
     Route: 058

REACTIONS (10)
  - Condition aggravated [Unknown]
  - Osteoporosis [Unknown]
  - Loss of personal independence in daily activities [Unknown]
  - Gait disturbance [Unknown]
  - Eye disorder [Unknown]
  - Visual impairment [Unknown]
  - Urinary tract infection [Unknown]
  - Rash [Unknown]
  - Neuralgia [Unknown]
  - Herpes zoster [Unknown]
